FAERS Safety Report 12978335 (Version 1)
Quarter: 2016Q4

REPORT INFORMATION
  Report Type: Spontaneous
  Country: US (occurrence: US)
  Receive Date: 20161128
  Receipt Date: 20161128
  Transmission Date: 20170207
  Serious: No
  Sender: FDA-Public Use
  Company Number: US-PFIZER INC-2016543896

PATIENT
  Sex: Female

DRUGS (23)
  1. LORATADINE. [Suspect]
     Active Substance: LORATADINE
     Dosage: UNK
  2. IPRATROPIUM/ALBUTEROL [Suspect]
     Active Substance: ALBUTEROL\IPRATROPIUM
     Dosage: UNK
  3. CELECOXIB. [Suspect]
     Active Substance: CELECOXIB
     Dosage: UNK
  4. ANASTROZOLE. [Suspect]
     Active Substance: ANASTROZOLE
     Dosage: UNK
  5. COLCHICINE. [Suspect]
     Active Substance: COLCHICINE
     Dosage: UNK
  6. FEXOFENADINE [Suspect]
     Active Substance: FEXOFENADINE\FEXOFENADINE HYDROCHLORIDE
     Dosage: UNK
  7. ROFECOXIB [Suspect]
     Active Substance: ROFECOXIB
     Dosage: UNK
  8. TRIAMCINOLONE ACETONIDE. [Suspect]
     Active Substance: TRIAMCINOLONE ACETONIDE
     Dosage: UNK
  9. DIPHENHYDRAMINE HCL [Suspect]
     Active Substance: DIPHENHYDRAMINE HYDROCHLORIDE
     Dosage: UNK
  10. METAXALONE. [Suspect]
     Active Substance: METAXALONE
     Dosage: UNK
  11. CODEINE [Suspect]
     Active Substance: CODEINE
     Dosage: UNK
  12. IBUPROFEN. [Suspect]
     Active Substance: IBUPROFEN
     Dosage: UNK
  13. CARISOPRODOL. [Suspect]
     Active Substance: CARISOPRODOL
     Dosage: UNK
  14. CYCLOBENZAPRINE [Suspect]
     Active Substance: CYCLOBENZAPRINE
     Dosage: UNK
  15. ISOSORBIDE DINITRATE. [Suspect]
     Active Substance: ISOSORBIDE DINITRATE
     Dosage: UNK
  16. MIDODRINE [Suspect]
     Active Substance: MIDODRINE
     Dosage: UNK
  17. ISOSORBIDE MONONITRATE. [Suspect]
     Active Substance: ISOSORBIDE MONONITRATE
     Dosage: UNK
  18. AZELASTINE [Suspect]
     Active Substance: AZELASTINE
     Dosage: UNK
  19. FLUTICASONE [Suspect]
     Active Substance: FLUTICASONE\FLUTICASONE PROPIONATE
     Dosage: UNK
  20. OXYCODONE/ACETAMINOPHEN [Suspect]
     Active Substance: ACETAMINOPHEN\OXYCODONE HYDROCHLORIDE
     Dosage: UNK
  21. PREDNISONE. [Suspect]
     Active Substance: PREDNISONE
     Dosage: UNK
  22. SUCRALFATE. [Suspect]
     Active Substance: SUCRALFATE
     Dosage: UNK
  23. SULINDAC. [Suspect]
     Active Substance: SULINDAC
     Dosage: UNK

REACTIONS (1)
  - Drug hypersensitivity [Unknown]
